FAERS Safety Report 6103151-9 (Version None)
Quarter: 2009Q1

REPORT INFORMATION
  Report Type: 
  Country: None (occurrence: None)
  Receive Date: 20090305
  Receipt Date: 20090304
  Transmission Date: 20090719
  Serious: Yes (Other)
  Sender: FDA-Public Use
  Company Number: US-PFIZER INC-2009161821

PATIENT

DRUGS (1)
  1. DILANTIN-125 [Suspect]

REACTIONS (1)
  - APPARENT DEATH [None]
